FAERS Safety Report 14115514 (Version 1)
Quarter: 2017Q4

REPORT INFORMATION
  Report Type: Other
  Country: GB (occurrence: GB)
  Receive Date: 20171023
  Receipt Date: 20171023
  Transmission Date: 20180321
  Serious: Yes (Disabling, Other)
  Sender: FDA-Public Use
  Company Number: GB-HERITAGE PHARMACEUTICALS-2017HTG00311

PATIENT
  Age: 26 Year
  Sex: Male
  Weight: 110 kg

DRUGS (3)
  1. ZOLPIDEM [Suspect]
     Active Substance: ZOLPIDEM\ZOLPIDEM TARTRATE
     Indication: INSOMNIA
     Dosage: UNK
     Route: 048
     Dates: start: 20170823, end: 20170911
  2. FLUOXETINE [Suspect]
     Active Substance: FLUOXETINE HYDROCHLORIDE
     Indication: DEPRESSION
     Dosage: UNK
     Route: 048
     Dates: start: 20170823, end: 20170911
  3. PROPRANOLOL HYDROCHLORIDE. [Concomitant]
     Active Substance: PROPRANOLOL HYDROCHLORIDE
     Dosage: UNK
     Dates: start: 20170823

REACTIONS (22)
  - Hyperhidrosis [Unknown]
  - Abnormal dreams [Unknown]
  - Aphasia [Unknown]
  - Diarrhoea [Unknown]
  - Mental impairment [Unknown]
  - Anxiety [Unknown]
  - Drug ineffective [Unknown]
  - Nausea [Unknown]
  - Decreased appetite [Unknown]
  - Feeling abnormal [Unknown]
  - Anorgasmia [Unknown]
  - Hypoaesthesia [Unknown]
  - Confusional state [Unknown]
  - Depression [Unknown]
  - Hypertension [Unknown]
  - Anhedonia [Unknown]
  - Disturbance in attention [Unknown]
  - Amnesia [Unknown]
  - Dyspepsia [Unknown]
  - Loss of libido [Unknown]
  - Erectile dysfunction [Unknown]
  - Emotional disorder [Unknown]

NARRATIVE: CASE EVENT DATE: 20170823
